FAERS Safety Report 25829447 (Version 1)
Quarter: 2025Q3

REPORT INFORMATION
  Report Type: Spontaneous
  Country: US (occurrence: US)
  Receive Date: 20250922
  Receipt Date: 20250922
  Transmission Date: 20251021
  Serious: Yes (Other)
  Sender: BRISTOL-MYERS SQUIBB COMPANY
  Company Number: US-BRISTOL-MYERS SQUIBB COMPANY-2025-129502

PATIENT
  Age: 42 Year
  Sex: Male

DRUGS (1)
  1. DASATINIB [Suspect]
     Active Substance: DASATINIB
     Indication: Chronic myeloid leukaemia
     Dates: start: 20231012

REACTIONS (6)
  - Pulmonary oedema [Unknown]
  - Swelling [Unknown]
  - Abdominal distension [Unknown]
  - Peripheral swelling [Unknown]
  - Dyspnoea [Unknown]
  - Genital swelling [Unknown]
